FAERS Safety Report 8192099-4 (Version None)
Quarter: 2012Q1

REPORT INFORMATION
  Report Type: 
  Country: None (occurrence: None)
  Receive Date: 20120307
  Receipt Date: 20120302
  Transmission Date: 20120608
  Serious: Yes (Other)
  Sender: FDA-Public Use
  Company Number: US-PFIZER INC-2012057082

PATIENT
  Sex: Female
  Weight: 79.365 kg

DRUGS (4)
  1. BENICAR [Concomitant]
     Indication: HYPERTENSION
     Dosage: UNK
  2. LYRICA [Suspect]
     Indication: NERVE INJURY
  3. LYRICA [Suspect]
     Indication: SPINAL OPERATION
     Dosage: 200 MG, 2X/DAY
     Route: 048
  4. BONIVA [Concomitant]
     Indication: OSTEOPOROSIS
     Dosage: UNK

REACTIONS (1)
  - MUSCULOSKELETAL DISCOMFORT [None]
